FAERS Safety Report 8460632 (Version 2)
Quarter: 2013Q3

REPORT INFORMATION
  Report Type: Report from Study
  Country: US (occurrence: US)
  Receive Date: 20120315
  Receipt Date: 20130719
  Transmission Date: 20140515
  Serious: Yes (Other)
  Sender: FDA-Public Use
  Company Number: US-UCBSA-053095

PATIENT
  Age: 29 Year
  Sex: Female
  Weight: 108.8 kg

DRUGS (7)
  1. CIMZIA [Suspect]
     Indication: CROHN^S DISEASE
     Dosage: TRANSMISSION VIA SEMEN
     Route: 067
  2. ZOLOFT [Concomitant]
     Dosage: DAILY DOSE: 100 MG
  3. PRENATAL [Concomitant]
  4. VITAMIN B COMPLEX [Concomitant]
  5. CLOMID [Concomitant]
  6. INFLIXIMAB [Concomitant]
     Indication: CROHN^S DISEASE
     Route: 067
     Dates: start: 201108, end: 20111229
  7. AZATHIOPRINE [Concomitant]
     Dosage: UNSPECIFIED DOSE
     Route: 067
     Dates: start: 20100212, end: 201101

REACTIONS (3)
  - Abortion spontaneous [Recovered/Resolved]
  - Pregnancy [Recovered/Resolved]
  - Exposure via body fluid [Recovered/Resolved]
